FAERS Safety Report 8964989 (Version 2)
Quarter: 2013Q1

REPORT INFORMATION
  Report Type: Spontaneous
  Country: BE (occurrence: BE)
  Receive Date: 20121214
  Receipt Date: 20130129
  Transmission Date: 20140127
  Serious: Yes (Hospitalization, Other)
  Sender: FDA-Public Use
  Company Number: BE-ROCHE-1169059

PATIENT
  Age: 77 Year
  Sex: Male

DRUGS (5)
  1. LUCENTIS [Suspect]
     Indication: AGE-RELATED MACULAR DEGENERATION
     Route: 050
     Dates: start: 201009
  2. LUCENTIS [Suspect]
     Route: 050
     Dates: start: 201208
  3. LUCENTIS [Suspect]
     Route: 050
     Dates: start: 201301
  4. PLAVIX [Concomitant]
  5. ZOCOR [Concomitant]

REACTIONS (2)
  - Myocardial infarction [Recovered/Resolved]
  - Cardiac arrest [Recovered/Resolved]
